FAERS Safety Report 9411062 (Version 2)
Quarter: 2013Q3

REPORT INFORMATION
  Report Type: Spontaneous
  Country: JP (occurrence: JP)
  Receive Date: 20130720
  Receipt Date: 20130802
  Transmission Date: 20140515
  Serious: Yes (Death, Other)
  Sender: FDA-Public Use
  Company Number: JP-ASTRAZENECA-2013SE52866

PATIENT
  Age: 60 Year
  Sex: Male

DRUGS (2)
  1. CRESTOR [Suspect]
     Route: 048
     Dates: start: 201202, end: 201203
  2. ZETIA [Suspect]
     Dosage: DOSE UNKNOWN

REACTIONS (2)
  - Hepatitis fulminant [Fatal]
  - Drug-induced liver injury [Unknown]
